FAERS Safety Report 9942315 (Version 1)
Quarter: 2014Q1

REPORT INFORMATION
  Report Type: Spontaneous
  Country: US (occurrence: US)
  Receive Date: 20140303
  Receipt Date: 20140303
  Transmission Date: 20141002
  Serious: No
  Sender: FDA-Public Use
  Company Number: US-ROXANE LABORATORIES, INC.-2014-RO-00274RO

PATIENT
  Sex: Male

DRUGS (1)
  1. LITHIUM CARBONATE [Suspect]
     Indication: MANIA
     Route: 065

REACTIONS (4)
  - Malaise [Unknown]
  - Anxiety [Unknown]
  - Cold sweat [Unknown]
  - Abdominal pain upper [Unknown]
